FAERS Safety Report 25265589 (Version 1)
Quarter: 2025Q2

REPORT INFORMATION
  Report Type: Spontaneous
  Country: US (occurrence: US)
  Receive Date: 20250503
  Receipt Date: 20250503
  Transmission Date: 20250717
  Serious: Yes (Hospitalization, Other)
  Sender: AMNEAL
  Company Number: US-AMNEAL PHARMACEUTICALS-2025-AMRX-01601

PATIENT
  Age: 4 Year
  Sex: Female

DRUGS (1)
  1. BUDESONIDE [Suspect]
     Active Substance: BUDESONIDE
     Indication: Product used for unknown indication
     Route: 048
     Dates: start: 202211, end: 202408

REACTIONS (3)
  - Femur fracture [Unknown]
  - Tibia fracture [Unknown]
  - Off label use [Unknown]

NARRATIVE: CASE EVENT DATE: 20240801
